FAERS Safety Report 26017593 (Version 1)
Quarter: 2025Q4

REPORT INFORMATION
  Report Type: Spontaneous
  Country: CA (occurrence: CA)
  Receive Date: 20251110
  Receipt Date: 20251110
  Transmission Date: 20260117
  Serious: Yes (Other)
  Sender: CELLTRION
  Company Number: CA-PFIZER INC-202500084044

PATIENT

DRUGS (23)
  1. INFLIXIMAB [Suspect]
     Active Substance: INFLIXIMAB
     Indication: Crohn^s disease
     Dosage: 540 MILLIGRAM
     Route: 042
  2. INFLIXIMAB [Suspect]
     Active Substance: INFLIXIMAB
     Dosage: 540 MILLIGRAM
     Route: 042
  3. INFLIXIMAB [Suspect]
     Active Substance: INFLIXIMAB
     Dosage: 540 MILLIGRAM
     Route: 042
  4. INFLIXIMAB [Suspect]
     Active Substance: INFLIXIMAB
     Dosage: 310 MILLIGRAM
     Route: 042
  5. INFLECTRA [Suspect]
     Active Substance: INFLIXIMAB-DYYB
     Indication: Crohn^s disease
     Dosage: 310 MG, Q 0, 2, 6 WEEKS THEN EVERY 8 WEEKS
     Route: 042
     Dates: start: 20210412, end: 202202
  6. INFLECTRA [Suspect]
     Active Substance: INFLIXIMAB-DYYB
     Dosage: 540 MG, EVERY 8 WEEKS
     Route: 042
     Dates: start: 20220407, end: 20241107
  7. INFLECTRA [Suspect]
     Active Substance: INFLIXIMAB-DYYB
     Dosage: 540 MG OR 10MG/KG ACCORDING TO WEIGHT, EVERY 4 WEEKS
     Route: 042
     Dates: start: 20241223
  8. INFLECTRA [Suspect]
     Active Substance: INFLIXIMAB-DYYB
     Dosage: 540 MG OR 10MG/KG ACCORDING TO WEIGHT, EVERY 4 WEEKS
     Route: 042
     Dates: start: 20250318
  9. CLOBETASOL [Concomitant]
     Active Substance: CLOBETASOL
     Dosage: 1 DF, 2X/DAY (0.05% APPLIED BID)
     Route: 061
  10. CLOBETASOL [Concomitant]
     Active Substance: CLOBETASOL
     Dosage: 1 DOSAGE FORM, 2 EVERY 1 DAYS
     Route: 061
  11. CORTODERM [Concomitant]
     Dosage: 1 DF, 2X/DAY (1% IN BID APPLICATION )
     Route: 061
  12. CORTODERM [Concomitant]
     Dosage: 1 DOSAGE FORMS, 2 EVERY 1 DAYS
     Route: 061
  13. EFUDEX [Concomitant]
     Active Substance: FLUOROURACIL
     Dosage: 1 DF, AS NEEDED
     Route: 065
  14. ESTRADIOL [Concomitant]
     Active Substance: ESTRADIOL
     Dosage: 1 MG, 1X/DAY, HS
     Route: 048
  15. POTASSIUM [Concomitant]
     Active Substance: POTASSIUM
     Dosage: 1 DF, DOSAGE NOT AVAILABLE
     Route: 065
  16. PREDNISONE [Concomitant]
     Active Substance: PREDNISONE
     Dosage: 20 MG, 1X/DAY, 1 EVERY 1 DAY
     Route: 048
  17. PROMETRIUM [Concomitant]
     Active Substance: PROGESTERONE
     Dosage: 100 MG, HS
  18. ALBUTEROL [Concomitant]
     Active Substance: ALBUTEROL
     Dosage: 1 DF, 4X/DAY, 100 HG TWO PUFFS AS NEEDED
  19. ALBUTEROL [Concomitant]
     Active Substance: ALBUTEROL
     Dosage: 1 DOSAGE FORM, 4 EVERY 1 DAYS
  20. SPIRIVA 18 [Concomitant]
     Dosage: 1 DF, 1X/DAY
     Route: 055
  21. SPIRIVA 18 [Concomitant]
     Dosage: 1 DF, 1 EVERY 1 DAYS
  22. TOPISONE [Concomitant]
     Dosage: 1 DF, 2X/DAY (0505% APPLIED AS NEEDED)
     Route: 065
  23. TOPISONE [Concomitant]
     Dosage: 1 DOSAGE FORM, 2 EVERY 1 DAYS
     Route: 065

REACTIONS (4)
  - Blood pressure systolic increased [Not Recovered/Not Resolved]
  - Heart rate increased [Not Recovered/Not Resolved]
  - Influenza like illness [Not Recovered/Not Resolved]
  - Pneumonia [Not Recovered/Not Resolved]

NARRATIVE: CASE EVENT DATE: 20250415
